FAERS Safety Report 13337214 (Version 2)
Quarter: 2018Q1

REPORT INFORMATION
  Report Type: Spontaneous
  Country: US (occurrence: US)
  Receive Date: 20170314
  Receipt Date: 20180212
  Transmission Date: 20180508
  Serious: Yes (Other)
  Sender: FDA-Public Use
  Company Number: US-BIOMARINAP-US-2017-112974

PATIENT
  Sex: Female

DRUGS (1)
  1. KUVAN [Suspect]
     Active Substance: SAPROPTERIN DIHYDROCHLORIDE
     Indication: PHENYLKETONURIA
     Dosage: 1200 MG, QD
     Route: 048
     Dates: start: 20170201

REACTIONS (4)
  - Pre-eclampsia [Unknown]
  - Vaginal haemorrhage [Unknown]
  - Maternal exposure during pregnancy [Unknown]
  - Muscle spasms [Unknown]
